FAERS Safety Report 16095029 (Version 3)
Quarter: 2019Q2

REPORT INFORMATION
  Report Type: Report from Study
  Country: JP (occurrence: JP)
  Receive Date: 20190320
  Receipt Date: 20190409
  Transmission Date: 20190711
  Serious: Yes (Death)
  Sender: FDA-Public Use
  Company Number: JP-TEVA-2019-JP-1024449

PATIENT
  Age: 71 Year
  Sex: Female

DRUGS (10)
  1. LEVODOPA [Concomitant]
     Active Substance: LEVODOPA
     Route: 065
     Dates: start: 2009, end: 20190305
  2. AZILECT [Suspect]
     Active Substance: RASAGILINE MESYLATE
     Indication: PARKINSON^S DISEASE
     Dosage: 1 MILLIGRAM DAILY;
     Route: 048
     Dates: start: 20190205, end: 20190305
  3. BONALON [Concomitant]
     Active Substance: ALENDRONATE SODIUM
     Route: 065
  4. REQUIP [Concomitant]
     Active Substance: ROPINIROLE HYDROCHLORIDE
     Route: 065
     Dates: end: 20190305
  5. LINZESS [Concomitant]
     Active Substance: LINACLOTIDE
     Route: 065
  6. DOPS [Concomitant]
     Active Substance: DROXIDOPA
     Route: 065
     Dates: start: 2009
  7. MUCOSTA [Concomitant]
     Active Substance: REBAMIPIDE
     Route: 065
  8. COMTAN [Concomitant]
     Active Substance: ENTACAPONE
     Dates: start: 2009, end: 20190305
  9. RIVOTRIL [Concomitant]
     Active Substance: CLONAZEPAM
     Route: 065
  10. ETIZOLAM [Concomitant]
     Active Substance: ETIZOLAM
     Route: 065

REACTIONS (1)
  - Death [Fatal]
